FAERS Safety Report 8559737-5 (Version None)
Quarter: 2012Q3

REPORT INFORMATION
  Report Type: 
  Country: None (occurrence: None)
  Receive Date: 20120802
  Receipt Date: 20120727
  Transmission Date: 20120928
  Serious: No
  Sender: FDA-Public Use
  Company Number: US-PFIZER INC-2012182877

PATIENT
  Sex: Male

DRUGS (4)
  1. IBUPROFEN (ADVIL) [Interacting]
     Dosage: UNK
  2. ASPIRIN [Interacting]
     Dosage: UNK
  3. ASPIRIN [Interacting]
     Indication: CARDIAC DISORDER
     Dosage: UNK, 1X/DAY
  4. IBUPROFEN (ADVIL) [Suspect]
     Indication: ARTHRITIS
     Dosage: UNK, 1X/DAY

REACTIONS (2)
  - DRUG INTERACTION [None]
  - DIZZINESS [None]
